FAERS Safety Report 8247536-3 (Version None)
Quarter: 2012Q1

REPORT INFORMATION
  Report Type: 
  Country: None (occurrence: None)
  Receive Date: 20120330
  Receipt Date: 20120320
  Transmission Date: 20120608
  Serious: Yes (Other)
  Sender: FDA-Public Use
  Company Number: US-COVIDIEN/TYCO HEALTHCARE/MALLINCKRODT-T201201157

PATIENT
  Age: 2 Year
  Sex: Male

DRUGS (1)
  1. EXALGO [Suspect]
     Dosage: 2 TABLETS,  12 MG EACH
     Dates: start: 20120102, end: 20120102

REACTIONS (1)
  - ACCIDENTAL DRUG INTAKE BY CHILD [None]
